FAERS Safety Report 10156107 (Version 2)
Quarter: 2014Q2

REPORT INFORMATION
  Report Type: Report from Study
  Country: NL (occurrence: NL)
  Receive Date: 20140506
  Receipt Date: 20140609
  Transmission Date: 20141212
  Serious: Yes (Hospitalization, Other)
  Sender: FDA-Public Use
  Company Number: PHHY2014NL054468

PATIENT
  Age: 54 Year
  Sex: Female

DRUGS (1)
  1. SANDOSTATIN LAR [Suspect]
     Indication: ACROMEGALY
     Dosage: 30 MG PER 2 ML, ONCE EVERY 4 WEEKS
     Route: 030

REACTIONS (4)
  - Altered state of consciousness [Recovered/Resolved]
  - Petit mal epilepsy [Recovered/Resolved]
  - Convulsion [Recovered/Resolved]
  - Snoring [Unknown]
